FAERS Safety Report 5213550-5 (Version None)
Quarter: 2007Q1

REPORT INFORMATION
  Report Type: 
  Country: None (occurrence: None)
  Receive Date: 20070119
  Receipt Date: 20070110
  Transmission Date: 20070707
  Serious: Yes (Death, Hospitalization, Other)
  Sender: FDA-Public Use
  Company Number: DE-BRISTOL-MYERS SQUIBB COMPANY-13582986

PATIENT
  Age: 71 Year
  Sex: Female
  Weight: 68 kg

DRUGS (11)
  1. SPRYCEL [Suspect]
     Indication: CHRONIC MYELOID LEUKAEMIA
     Route: 048
     Dates: start: 20060901, end: 20061028
  2. ARA-C [Concomitant]
     Route: 058
     Dates: start: 20060922, end: 20060924
  3. UNAT [Concomitant]
     Route: 048
  4. ALLOPURINOL SODIUM [Concomitant]
  5. REMERGIL [Concomitant]
  6. KALINOR [Concomitant]
     Route: 048
  7. PASPERTIN [Concomitant]
  8. LEVOTHYROXINE SODIUM [Concomitant]
  9. RED BLOOD CELLS [Concomitant]
     Route: 042
     Dates: start: 20061109, end: 20061109
  10. MOVICOL [Concomitant]
     Route: 048
     Dates: start: 20060920
  11. PRIMAXIN [Concomitant]
     Route: 042
     Dates: start: 20061108, end: 20061112

REACTIONS (5)
  - DYSPNOEA [None]
  - FEBRILE INFECTION [None]
  - MALIGNANT NEOPLASM PROGRESSION [None]
  - OVERDOSE [None]
  - SUICIDE ATTEMPT [None]
